FAERS Safety Report 7271115-8 (Version None)
Quarter: 2011Q1

REPORT INFORMATION
  Report Type: 
  Country: None (occurrence: None)
  Receive Date: 20110202
  Receipt Date: 20110124
  Transmission Date: 20110831
  Serious: Yes (Hospitalization)
  Sender: FDA-Public Use
  Company Number: US-ASTRAZENECA-2010SE23442

PATIENT
  Age: 59 Year
  Sex: Female
  Weight: 61.2 kg

DRUGS (18)
  1. SEROQUEL [Suspect]
     Route: 048
  2. XANAX [Concomitant]
  3. SEROQUEL [Suspect]
     Indication: POST-TRAUMATIC STRESS DISORDER
     Route: 048
  4. SEROQUEL [Suspect]
     Route: 048
  5. SEROQUEL [Suspect]
     Route: 048
  6. SEROQUEL [Suspect]
     Route: 048
  7. SEROQUEL [Suspect]
     Route: 048
  8. SEROQUEL [Suspect]
     Indication: MOOD ALTERED
     Route: 048
  9. SEROQUEL [Suspect]
     Route: 048
  10. CYMBALTA [Concomitant]
  11. SEROQUEL [Suspect]
     Route: 048
  12. SEROQUEL [Suspect]
     Route: 048
  13. SEROQUEL [Suspect]
     Indication: SCHIZOAFFECTIVE DISORDER
     Route: 048
  14. SEROQUEL [Suspect]
     Route: 048
  15. SEROQUEL [Suspect]
     Route: 048
  16. SEROQUEL [Suspect]
     Route: 048
  17. SEROQUEL [Suspect]
     Route: 048
  18. TEMAZEPAM [Concomitant]
     Indication: SLEEP DISORDER

REACTIONS (18)
  - LETHARGY [None]
  - DRUG DOSE OMISSION [None]
  - POST-TRAUMATIC STRESS DISORDER [None]
  - MANIA [None]
  - DIZZINESS [None]
  - ROAD TRAFFIC ACCIDENT [None]
  - NO ADVERSE EVENT [None]
  - ABNORMAL BEHAVIOUR [None]
  - HUNGER [None]
  - PARANOIA [None]
  - FALL [None]
  - RESTLESSNESS [None]
  - CONFUSIONAL STATE [None]
  - INCORRECT DOSE ADMINISTERED [None]
  - THERAPEUTIC RESPONSE UNEXPECTED [None]
  - HALLUCINATION [None]
  - SLEEP-RELATED EATING DISORDER [None]
  - WRONG TECHNIQUE IN DRUG USAGE PROCESS [None]
